FAERS Safety Report 23163249 (Version 1)
Quarter: 2023Q4

REPORT INFORMATION
  Report Type: Spontaneous
  Country: US (occurrence: US)
  Receive Date: 20231109
  Receipt Date: 20231109
  Transmission Date: 20240110
  Serious: No
  Sender: FDA-Public Use
  Company Number: US-PADAGIS-2023PAD01576

PATIENT

DRUGS (2)
  1. TRETINOIN [Suspect]
     Active Substance: TRETINOIN
     Indication: Pigmentation disorder
     Dosage: UNK, QD
     Route: 061
  2. TRETINOIN [Suspect]
     Active Substance: TRETINOIN
     Indication: Skin wrinkling

REACTIONS (3)
  - Acne [Unknown]
  - Product use issue [Unknown]
  - Drug effective for unapproved indication [Unknown]
